FAERS Safety Report 8465240-3 (Version None)
Quarter: 2012Q2

REPORT INFORMATION
  Report Type: 
  Country: None (occurrence: None)
  Receive Date: 20120626
  Receipt Date: 20120621
  Transmission Date: 20120825
  Serious: Yes (Hospitalization)
  Sender: FDA-Public Use
  Company Number: PHEH2012US002300

PATIENT
  Sex: Female

DRUGS (1)
  1. GLEEVEC [Suspect]
     Indication: GASTRIC CANCER
     Dosage: 400 MG QD
     Route: 048
     Dates: start: 20101001

REACTIONS (4)
  - ABSCESS [None]
  - BENIGN OVARIAN TUMOUR [None]
  - OVARIAN CYST [None]
  - PULMONARY THROMBOSIS [None]
